FAERS Safety Report 4337761-6 (Version None)
Quarter: 2004Q2

REPORT INFORMATION
  Report Type: 
  Country: None (occurrence: None)
  Receive Date: 20040413
  Receipt Date: 20040319
  Transmission Date: 20050107
  Serious: Yes (Hospitalization)
  Sender: FDA-Public Use
  Company Number: PHBS2004JP03977

PATIENT
  Age: 64 Year
  Sex: Male

DRUGS (9)
  1. VOLTAREN [Suspect]
     Indication: RHEUMATOID ARTHRITIS
     Dates: start: 19900101, end: 20020201
  2. NSAID'S [Suspect]
     Indication: RHEUMATOID ARTHRITIS
     Dates: start: 19970101, end: 20020201
  3. ADRENOCORTICAL HORMONE PREPARATIONS [Concomitant]
     Indication: RHEUMATOID ARTHRITIS
     Dates: start: 19970101, end: 20020201
  4. INSULIN [Concomitant]
     Dates: start: 19900101, end: 20020101
  5. ASPIRIN [Suspect]
     Dosage: 100 MG/DAY
     Route: 048
     Dates: start: 20010101
  6. CILOSTAZOL [Concomitant]
     Dosage: 200 MG/DAY
     Route: 048
     Dates: start: 20010101
  7. TICLOPIDINE HCL [Concomitant]
     Dosage: 200 MG/DAY
     Route: 048
     Dates: start: 20010101
  8. HEPARIN [Concomitant]
     Dosage: 15,000 U/DAY
     Dates: start: 20010101
  9. HEPARIN [Concomitant]
     Dosage: 20,000 U/DAY

REACTIONS (5)
  - ANGINA UNSTABLE [None]
  - CORONARY ARTERY STENOSIS [None]
  - DRUG INTERACTION [None]
  - ELECTROCARDIOGRAM ST SEGMENT ABNORMAL [None]
  - THROMBOSIS [None]
